FAERS Safety Report 8522893-9 (Version None)
Quarter: 2012Q3

REPORT INFORMATION
  Report Type: 
  Country: None (occurrence: None)
  Receive Date: 20120720
  Receipt Date: 20120709
  Transmission Date: 20120928
  Serious: No
  Sender: FDA-Public Use
  Company Number: US-BIOGENIDEC-2012BI019541

PATIENT
  Age: 55 Year
  Sex: Male

DRUGS (41)
  1. PREDNISOLONE ACETATE [Concomitant]
  2. NEURONTIN [Concomitant]
  3. LORTAB [Concomitant]
  4. POLYETHYLENE GLYCOL [Concomitant]
     Route: 048
  5. RESTASIS [Concomitant]
  6. DIAZEPAM [Concomitant]
  7. TEMAZEPAM [Concomitant]
  8. OMNARIS [Concomitant]
     Route: 045
  9. LOTEMAX 0.5% EYE DROPS [Concomitant]
  10. BUTALBITAL ACETAMINOPHEN AND CAFFEINE [Concomitant]
  11. CLOPIDOGREL [Concomitant]
  12. TYSABRI [Suspect]
     Indication: MULTIPLE SCLEROSIS
     Route: 042
     Dates: start: 20090318, end: 20120605
  13. LEVOTHYROXINE SODIUM [Concomitant]
  14. PATADAY 0.2% EYE DROPS [Concomitant]
  15. ZOLOFT [Concomitant]
  16. CITALOPRAM HYDROBROMIDE [Concomitant]
  17. VESICARE [Concomitant]
  18. NUVIGIL [Concomitant]
  19. LISINOPRIL AND HYDROCHLOROTHIAZIDE [Concomitant]
  20. TRIAMCINOLONE ACETONIDE 0.1 % TOPICAL CREAM [Concomitant]
  21. BENICAR HCT [Concomitant]
  22. ZOCOR [Concomitant]
  23. EFFEXOR [Concomitant]
     Indication: DEPRESSION
  24. DOXYCYCLINE HYCLATE [Concomitant]
  25. PRIMIDONE [Concomitant]
  26. LISINOPRIL [Concomitant]
  27. MENTAX [Concomitant]
  28. PRISTIQ [Concomitant]
  29. PRIMIDONE [Concomitant]
  30. ALPRAZOLAM [Concomitant]
  31. TOBRAMYCIN-DEXAMETHASONE 0.3%-0.1 % EYE DROPS [Concomitant]
  32. PLAVIX [Concomitant]
  33. CHANTIX [Concomitant]
  34. NEXIUM [Concomitant]
  35. FLUTICASONE PROPIONATE [Concomitant]
     Route: 045
  36. VENLAFAXINE HCL EXTENDED-RELEASE [Concomitant]
  37. KETOCONAZOLE 2% TOPICAL CREAM [Concomitant]
  38. FENOFIBRATE [Concomitant]
  39. PROMETHAZINE [Concomitant]
  40. AMPYRA [Concomitant]
  41. CRESTOR [Concomitant]

REACTIONS (8)
  - GASTROINTESTINAL DISORDER [None]
  - MUSCULAR WEAKNESS [None]
  - HAEMORRHOIDS [None]
  - FATIGUE [None]
  - CONSTIPATION [None]
  - MAJOR DEPRESSION [None]
  - HEADACHE [None]
  - VISUAL IMPAIRMENT [None]
